FAERS Safety Report 5415857-5 (Version None)
Quarter: 2007Q3

REPORT INFORMATION
  Report Type: 
  Country: None (occurrence: None)
  Receive Date: 20070815
  Receipt Date: 20070809
  Transmission Date: 20080115
  Serious: No
  Sender: FDA-Public Use
  Company Number: US-BOEHRINGER INGELHEIM PHARMACEUTICALS, INC.-2007-BP-12171BP

PATIENT
  Sex: Male

DRUGS (8)
  1. CATAPRES-TTS-1 [Suspect]
     Indication: HYPERTENSION
     Route: 061
     Dates: start: 20040601
  2. TOPROL-XL [Concomitant]
     Indication: HYPERTENSION
  3. DIOVAN HCT [Concomitant]
     Indication: HYPERTENSION
  4. TEKTURNA [Concomitant]
     Indication: HYPERTENSION
     Dates: start: 20070519
  5. ASPIRIN [Concomitant]
  6. FUROSEMIDE [Concomitant]
  7. CRESTOR [Concomitant]
  8. POTASSIUM CHLORIDE MICRO ER [Concomitant]

REACTIONS (1)
  - BLOOD PRESSURE INADEQUATELY CONTROLLED [None]
